FAERS Safety Report 10301584 (Version 2)
Quarter: 2015Q4

REPORT INFORMATION
  Report Type: Spontaneous
  Country: DK (occurrence: DK)
  Receive Date: 20140714
  Receipt Date: 20151211
  Transmission Date: 20160304
  Serious: Yes (Disabling)
  Sender: FDA-Public Use
  Company Number: DK-SA-2014SA088378

PATIENT
  Age: 64 Year
  Sex: Female

DRUGS (17)
  1. GABAPENTIN. [Concomitant]
     Active Substance: GABAPENTIN
     Indication: PRODUCT USED FOR UNKNOWN INDICATION
  2. IBUPROFEN. [Concomitant]
     Active Substance: IBUPROFEN
     Indication: PRODUCT USED FOR UNKNOWN INDICATION
  3. PREDNISOLON [Concomitant]
     Active Substance: PREDNISOLONE
     Indication: PRODUCT USED FOR UNKNOWN INDICATION
  4. TAVEGYL [Concomitant]
     Active Substance: CLEMASTINE FUMARATE
     Indication: HYPERSENSITIVITY
     Dosage: STYRKE: 1 MG/ML.
     Dates: start: 20111116, end: 20111116
  5. STESOLID [Concomitant]
     Active Substance: DIAZEPAM
     Indication: HYPERSENSITIVITY
     Dosage: STYRKE: 5 MG/ML.
     Dates: start: 20111116, end: 20111116
  6. CYCLOPHOSPHAMIDE. [Concomitant]
     Active Substance: CYCLOPHOSPHAMIDE
     Dosage: 3 CYCLES
     Dates: start: 2011
  7. ZOFRAN [Concomitant]
     Active Substance: ONDANSETRON HYDROCHLORIDE
     Indication: PRODUCT USED FOR UNKNOWN INDICATION
  8. NEULASTA [Concomitant]
     Active Substance: PEGFILGRASTIM
     Indication: BREAST CANCER
     Dosage: STYRKE: 6 MG.
     Dates: start: 201112, end: 20111229
  9. TAXOTERE [Suspect]
     Active Substance: DOCETAXEL
     Indication: BREAST CANCER
     Dosage: DOSIS: 180 MG (16NOV2011), 126.8 MG OG 126.8 MG (29DEC2011).?STYRKE: 20 MG/ML.
     Route: 042
     Dates: start: 20111116, end: 20111229
  10. EMPERAL [Suspect]
     Active Substance: METOCLOPRAMIDE HYDROCHLORIDE
     Indication: NAUSEA
     Dosage: DOSE AND FREQUENCY: AS NEEDED MAX. 3 TIMES A DAY?STRENGTH: 10 MG
     Route: 048
     Dates: start: 20111125
  11. KLYX [Concomitant]
     Active Substance: DOCUSATE SODIUM
     Indication: PRODUCT USED FOR UNKNOWN INDICATION
     Dosage: STYRKE: 1 + 250 MG/ML.
  12. MORFIN [Concomitant]
     Active Substance: MORPHINE SULFATE
     Indication: PRODUCT USED FOR UNKNOWN INDICATION
  13. IMODIUM [Concomitant]
     Active Substance: LOPERAMIDE HYDROCHLORIDE
     Indication: DIARRHOEA
     Dates: start: 20111208
  14. MAGNESIUM [Concomitant]
     Active Substance: MAGNESIUM
     Indication: PRODUCT USED FOR UNKNOWN INDICATION
  15. PAMOL [Concomitant]
     Active Substance: ACETAMINOPHEN
     Indication: PRODUCT USED FOR UNKNOWN INDICATION
  16. EPIRUBICIN [Concomitant]
     Active Substance: EPIRUBICIN
     Dosage: 3 CYCLES
     Dates: start: 2011
  17. DOLOL [Concomitant]
     Active Substance: TRAMADOL
     Indication: ARTHRALGIA
     Dosage: STYRKE: 50 MG.
     Dates: start: 20111120

REACTIONS (6)
  - Gait disturbance [Not Recovered/Not Resolved]
  - Nerve injury [Not Recovered/Not Resolved]
  - Motor dysfunction [Not Recovered/Not Resolved]
  - Parkinsonism [Not Recovered/Not Resolved]
  - Paraesthesia [Not Recovered/Not Resolved]
  - Balance disorder [Not Recovered/Not Resolved]

NARRATIVE: CASE EVENT DATE: 201111
